FAERS Safety Report 12703003 (Version 1)
Quarter: 2016Q3

REPORT INFORMATION
  Report Type: Spontaneous
  Country: ZA (occurrence: ZA)
  Receive Date: 20160831
  Receipt Date: 20160831
  Transmission Date: 20161109
  Serious: Yes (Death, Hospitalization)
  Sender: FDA-Public Use
  Company Number: ZA-NORTHSTAR HEALTHCARE HOLDINGS-ZA-2016NSR001843

PATIENT
  Age: 9 Year
  Sex: Female

DRUGS (1)
  1. PROPRANOLOL HYDROCHLORIDE. [Suspect]
     Active Substance: PROPRANOLOL HYDROCHLORIDE
     Indication: HYPERMETABOLISM
     Dosage: 4 MG/KG, QD

REACTIONS (13)
  - Clostridium difficile infection [Unknown]
  - Stress ulcer [Unknown]
  - Gastrointestinal necrosis [Unknown]
  - Pneumatosis intestinalis [Unknown]
  - Abdominal discomfort [Unknown]
  - Pseudomonas infection [Unknown]
  - Intestinal ischaemia [Fatal]
  - Portal venous gas [Unknown]
  - Hypotension [Unknown]
  - Diarrhoea [Unknown]
  - Acinetobacter bacteraemia [Unknown]
  - Abdominal distension [Unknown]
  - Intestinal dilatation [Unknown]
